FAERS Safety Report 11882435 (Version 1)
Quarter: 2015Q4

REPORT INFORMATION
  Report Type: Other
  Country: US (occurrence: US)
  Receive Date: 20151231
  Receipt Date: 20151231
  Transmission Date: 20160305
  Serious: Yes (Other)
  Sender: FDA-Public Use
  Company Number: US-MEDAC PHARMA, INC.-1046029

PATIENT
  Age: 33 Year
  Sex: Female

DRUGS (1)
  1. METHOTREXATE [Suspect]
     Active Substance: METHOTREXATE
     Indication: ECTOPIC PREGNANCY

REACTIONS (1)
  - Drug ineffective [Unknown]
